FAERS Safety Report 10464858 (Version 2)
Quarter: 2014Q4

REPORT INFORMATION
  Report Type: Report from Study
  Country: JP (occurrence: JP)
  Receive Date: 20140919
  Receipt Date: 20141006
  Transmission Date: 20150528
  Serious: Yes (Other)
  Sender: FDA-Public Use
  Company Number: JP-BRISTOL-MYERS SQUIBB COMPANY-21409248

PATIENT
  Age: 67 Year
  Sex: Male
  Weight: 75 kg

DRUGS (8)
  1. ASPIRIN. [Suspect]
     Active Substance: ASPIRIN
     Indication: REHABILITATION THERAPY
     Route: 048
  2. VILDAGLIPTIN [Concomitant]
     Active Substance: VILDAGLIPTIN
     Indication: DIABETES MELLITUS
     Route: 048
  3. ELIQUIS [Suspect]
     Active Substance: APIXABAN
     Indication: THROMBOSIS PROPHYLAXIS
     Dosage: TABLET
     Route: 048
     Dates: start: 20140520, end: 20140604
  4. ARTIST [Concomitant]
     Active Substance: CARVEDILOL
     Route: 048
  5. SOLANAX [Concomitant]
     Active Substance: ALPRAZOLAM
     Indication: DEPRESSION
     Route: 048
  6. AMARYL [Concomitant]
     Active Substance: GLIMEPIRIDE
     Indication: DIABETES MELLITUS
     Route: 048
  7. MEXITIL [Concomitant]
     Active Substance: MEXILETINE HYDROCHLORIDE
     Indication: VENTRICULAR EXTRASYSTOLES
     Route: 048
  8. DEPROMEL [Concomitant]
     Active Substance: FLUVOXAMINE
     Indication: DEPRESSION
     Route: 048

REACTIONS (2)
  - Melaena [Unknown]
  - Gastric ulcer [Recovered/Resolved]

NARRATIVE: CASE EVENT DATE: 20140601
